FAERS Safety Report 24325749 (Version 7)
Quarter: 2024Q4

REPORT INFORMATION
  Report Type: Spontaneous
  Country: DE (occurrence: DE)
  Receive Date: 20240917
  Receipt Date: 20241111
  Transmission Date: 20250115
  Serious: Yes (Other)
  Sender: ALKEM
  Company Number: DE-ALKEM LABORATORIES LIMITED-DE-ALKEM-2024-20342

PATIENT
  Age: 37 Year
  Sex: Female

DRUGS (8)
  1. PREGABALIN [Suspect]
     Active Substance: PREGABALIN
     Indication: Bipolar II disorder
     Dosage: 50 MILLIGRAM, QD
     Route: 065
  2. PREGABALIN [Suspect]
     Active Substance: PREGABALIN
     Indication: Alcohol use disorder
     Dosage: 100 MILLIGRAM, QD (DOSE INCREASED)
     Route: 065
  3. LAMOTRIGINE [Suspect]
     Active Substance: LAMOTRIGINE
     Indication: Mood swings
     Dosage: UNK (STANDARD DOSAGE)
     Route: 065
  4. LAMOTRIGINE [Suspect]
     Active Substance: LAMOTRIGINE
     Indication: Depression
  5. LITHIUM [Suspect]
     Active Substance: LITHIUM
     Indication: Mood swings
     Dosage: UNK (STANDARD DOSAGE)
     Route: 065
  6. LITHIUM [Suspect]
     Active Substance: LITHIUM
     Indication: Depression
  7. QUETIAPINE [Concomitant]
     Active Substance: QUETIAPINE
     Indication: Bipolar disorder
     Dosage: 150 MILLIGRAM (SUSTAINED-RELEASE TABLETS)
     Route: 065
  8. QUETIAPINE [Concomitant]
     Active Substance: QUETIAPINE
     Dosage: 200 MILLIGRAM, QD (EVERY 1 DAY)
     Route: 065

REACTIONS (7)
  - Self-injurious ideation [Recovering/Resolving]
  - Condition aggravated [Recovering/Resolving]
  - Depressive symptom [Recovering/Resolving]
  - Suicidal ideation [Recovering/Resolving]
  - Crying [Unknown]
  - Feeling of despair [Unknown]
  - Drug ineffective [Unknown]
